FAERS Safety Report 5276615-8 (Version None)
Quarter: 2007Q1

REPORT INFORMATION
  Report Type: 
  Country: None (occurrence: None)
  Receive Date: 20070327
  Receipt Date: 20070314
  Transmission Date: 20070707
  Serious: Yes (Hospitalization)
  Sender: FDA-Public Use
  Company Number: PHRM2007FR01053

PATIENT
  Age: 73 Year
  Sex: Female
  Weight: 78 kg

DRUGS (3)
  1. TAREG [Suspect]
     Indication: HYPERTENSION
     Dosage: 160 MG/DAY
     Route: 048
     Dates: start: 20041015, end: 20061003
  2. ATACAND [Suspect]
     Dosage: 16 MG/DAY
     Route: 048
     Dates: start: 20061004, end: 20061229
  3. MICARDIS [Suspect]
     Dosage: 1 DF, QD
     Route: 048
     Dates: start: 20061230, end: 20070115

REACTIONS (15)
  - ANTINUCLEAR ANTIBODY POSITIVE [None]
  - ARTHRALGIA [None]
  - C-REACTIVE PROTEIN INCREASED [None]
  - CYTOMEGALOVIRUS ANTIBODY POSITIVE [None]
  - DERMATITIS PSORIASIFORM [None]
  - ECZEMA [None]
  - EPSTEIN-BARR VIRUS ANTIGEN POSITIVE [None]
  - INFLAMMATION [None]
  - PARVOVIRUS B19 SEROLOGY POSITIVE [None]
  - PRURIGO [None]
  - PRURITUS GENERALISED [None]
  - RED BLOOD CELL SEDIMENTATION RATE INCREASED [None]
  - SEROLOGY ABNORMAL [None]
  - SKIN EXFOLIATION [None]
  - TOXIC SKIN ERUPTION [None]
